FAERS Safety Report 17150319 (Version 1)
Quarter: 2019Q4

REPORT INFORMATION
  Report Type: Spontaneous
  Country: US (occurrence: US)
  Receive Date: 20191213
  Receipt Date: 20191213
  Transmission Date: 20200122
  Serious: Yes (Other)
  Sender: FDA-Public Use
  Company Number: US-ELI_LILLY_AND_COMPANY-US201912002588

PATIENT
  Sex: Female

DRUGS (1)
  1. CYMBALTA [Suspect]
     Active Substance: DULOXETINE HYDROCHLORIDE
     Indication: PRODUCT USED FOR UNKNOWN INDICATION
     Dosage: UNK, UNKNOWN
     Route: 065

REACTIONS (10)
  - Depressed mood [Unknown]
  - Malaise [Unknown]
  - Thinking abnormal [Unknown]
  - Amnesia [Unknown]
  - Crying [Unknown]
  - Decreased appetite [Unknown]
  - Dizziness [Unknown]
  - Hypotension [Unknown]
  - Gait disturbance [Unknown]
  - Dyspnoea [Unknown]
